FAERS Safety Report 5940650-4 (Version None)
Quarter: 2008Q4

REPORT INFORMATION
  Report Type: 
  Country: None (occurrence: None)
  Receive Date: 20081103
  Receipt Date: 20081103
  Transmission Date: 20090506
  Serious: Yes (Other)
  Sender: FDA-Public Use
  Company Number: None

PATIENT
  Sex: Female
  Weight: 68.0396 kg

DRUGS (3)
  1. TRICOR [Suspect]
     Indication: BLOOD CHOLESTEROL INCREASED
     Dosage: 1 DAILY 6 OR 7 DAYS
  2. LIPITOR [Concomitant]
  3. CRESTOR [Concomitant]

REACTIONS (4)
  - DIAPHRAGMATIC DISORDER [None]
  - DYSPNOEA [None]
  - FEAR [None]
  - MUSCULAR WEAKNESS [None]
